FAERS Safety Report 5179001-4 (Version None)
Quarter: 2006Q4

REPORT INFORMATION
  Report Type: 
  Country: None (occurrence: None)
  Receive Date: 20061215
  Receipt Date: 20061215
  Transmission Date: 20070319
  Serious: Yes (Other)
  Sender: FDA-Public Use
  Company Number: None

PATIENT
  Age: 45 Year
  Sex: Male
  Weight: 73.4827 kg

DRUGS (2)
  1. EFFEXOR [Suspect]
     Indication: DEPRESSION
     Dosage: 300 MG 1 TIME DAILY PO
     Route: 048
     Dates: start: 20040801, end: 20061214
  2. EFFEXOR [Suspect]
     Indication: GENERALISED ANXIETY DISORDER
     Dosage: 300 MG 1 TIME DAILY PO
     Route: 048
     Dates: start: 20040801, end: 20061214

REACTIONS (6)
  - DRUG DOSE OMISSION [None]
  - DRUG WITHDRAWAL SYNDROME [None]
  - FATIGUE [None]
  - INFLUENZA LIKE ILLNESS [None]
  - NERVOUS SYSTEM DISORDER [None]
  - SENSORY DISTURBANCE [None]
